FAERS Safety Report 7830761-0 (Version None)
Quarter: 2011Q4

REPORT INFORMATION
  Report Type: 
  Country: None (occurrence: None)
  Receive Date: 20111021
  Receipt Date: 20111012
  Transmission Date: 20120403
  Serious: Yes (Hospitalization)
  Sender: FDA-Public Use
  Company Number: US-GLAXOSMITHKLINE-A0845541A

PATIENT
  Age: 54 Year
  Sex: Female
  Weight: 104.5 kg

DRUGS (6)
  1. METFORMIN HCL [Concomitant]
  2. AVANDIA [Suspect]
     Indication: TYPE 2 DIABETES MELLITUS
     Dosage: 8MG PER DAY
     Route: 048
     Dates: start: 20020211, end: 20070621
  3. VYTORIN [Concomitant]
  4. GLYBURIDE [Concomitant]
     Dates: end: 20060130
  5. HYDROCHLOROTHIAZIDE [Concomitant]
  6. NIFEDIPINE [Concomitant]

REACTIONS (2)
  - ISCHAEMIC STROKE [None]
  - TRANSIENT ISCHAEMIC ATTACK [None]
